FAERS Safety Report 6728452-2 (Version None)
Quarter: 2010Q2

REPORT INFORMATION
  Report Type: 
  Country: None (occurrence: None)
  Receive Date: 20100517
  Receipt Date: 20100505
  Transmission Date: 20101027
  Serious: Yes (Other)
  Sender: FDA-Public Use
  Company Number: GB-WATSON-2010-04952

PATIENT

DRUGS (3)
  1. SERTRALINE HCL [Suspect]
     Indication: DEPRESSION
     Dosage: 50 MG, DAILY
     Route: 048
     Dates: start: 20080909, end: 20081003
  2. CITALOPRAM HYDROBROMIDE [Suspect]
     Indication: DRUG USE FOR UNKNOWN INDICATION
  3. FLUOXETINE [Suspect]
     Indication: DRUG USE FOR UNKNOWN INDICATION

REACTIONS (6)
  - ASTHMA [None]
  - HYPERSENSITIVITY [None]
  - JOINT SWELLING [None]
  - PRURITUS [None]
  - RASH [None]
  - URTICARIA [None]
